FAERS Safety Report 10551028 (Version 1)
Quarter: 2014Q4

REPORT INFORMATION
  Report Type: Spontaneous
  Country: US (occurrence: None)
  Receive Date: 20141028
  Receipt Date: 20141028
  Transmission Date: 20150529
  Serious: Yes (Hospitalization)
  Sender: FDA-Public Use
  Company Number: None

PATIENT
  Age: 69 Year
  Sex: Male
  Weight: 136.08 kg

DRUGS (1)
  1. SIMVASTATIN. [Suspect]
     Active Substance: SIMVASTATIN
     Indication: HYPERCHOLESTEROLAEMIA
     Dosage: 1 BY MOUTH AT BEDTIME QD ORAL
     Route: 048
     Dates: start: 20140501, end: 20140712

REACTIONS (3)
  - Hypoglycaemia [None]
  - Type 1 diabetes mellitus [None]
  - Weight decreased [None]

NARRATIVE: CASE EVENT DATE: 20140712
